FAERS Safety Report 6024868-0 (Version None)
Quarter: 2008Q4

REPORT INFORMATION
  Report Type: 
  Country: None (occurrence: None)
  Receive Date: 20081231
  Receipt Date: 20081226
  Transmission Date: 20090506
  Serious: Yes (Other)
  Sender: FDA-Public Use
  Company Number: US-PFIZER INC-2008092444

PATIENT
  Sex: Female

DRUGS (2)
  1. LIPITOR [Suspect]
     Dosage: 10 MG, UNK
     Dates: start: 19980101
  2. LIPITOR [Suspect]
     Dates: start: 19980101

REACTIONS (2)
  - THYROID DISORDER [None]
  - THYROID NEOPLASM [None]
